FAERS Safety Report 12067572 (Version 1)
Quarter: 2016Q1

REPORT INFORMATION
  Report Type: Spontaneous
  Country: None (occurrence: None)
  Receive Date: 20160210
  Receipt Date: 20160210
  Transmission Date: 20160526
  Serious: No
  Sender: FDA-Public Use
  Company Number: None

PATIENT
  Age: 64 Year
  Sex: Male
  Weight: 78.02 kg

DRUGS (2)
  1. TERAZOSIN [Concomitant]
     Active Substance: TERAZOSIN\TERAZOSIN HYDROCHLORIDE
  2. BECLOMETHASONE 80 MCG QVAR [Suspect]
     Active Substance: BECLOMETHASONE
     Indication: COUGH
     Dosage: 2 PUFFS TWICE DAILY INHALATION
     Route: 055
     Dates: start: 20160202, end: 20160207

REACTIONS (3)
  - Speech disorder [None]
  - Glossodynia [None]
  - Dysphonia [None]

NARRATIVE: CASE EVENT DATE: 20160202
